FAERS Safety Report 12806161 (Version 1)
Quarter: 2016Q4

REPORT INFORMATION
  Report Type: Spontaneous
  Country: FR (occurrence: FR)
  Receive Date: 20161004
  Receipt Date: 20161004
  Transmission Date: 20170207
  Serious: Yes (Other)
  Sender: FDA-Public Use
  Company Number: FR-BRISTOL-MYERS SQUIBB COMPANY-BMS-2016-052450

PATIENT
  Age: 62 Year
  Sex: Male
  Weight: 65 kg

DRUGS (1)
  1. OPDIVO [Suspect]
     Active Substance: NIVOLUMAB
     Indication: ADENOCARCINOMA
     Dosage: 220 MG, Q2WK
     Route: 042
     Dates: start: 20150827, end: 20160521

REACTIONS (2)
  - Oedema [Recovered/Resolved]
  - Sodium retention [Recovered/Resolved]

NARRATIVE: CASE EVENT DATE: 201202
